FAERS Safety Report 15259689 (Version 2)
Quarter: 2018Q3

REPORT INFORMATION
  Report Type: Other
  Country: AT (occurrence: AT)
  Receive Date: 20180809
  Receipt Date: 20180815
  Transmission Date: 20181010
  Serious: Yes (Other)
  Sender: FDA-Public Use
  Company Number: AT-RARE DISEASE THERAPEUTICS, INC.-2053501

PATIENT
  Sex: Male

DRUGS (16)
  1. VORICONAZOLE. [Suspect]
     Active Substance: VORICONAZOLE
     Route: 065
  2. ICLUSIG [Suspect]
     Active Substance: PONATINIB
     Route: 065
     Dates: start: 20161013, end: 20170622
  3. METHOTREXATE. [Suspect]
     Active Substance: METHOTREXATE
     Route: 065
     Dates: start: 20170517, end: 20170618
  4. DEXAMETHASONE. [Suspect]
     Active Substance: DEXAMETHASONE
     Route: 065
     Dates: start: 20170517, end: 20170618
  5. CYCLOPHOSPHAMIDE. [Suspect]
     Active Substance: CYCLOPHOSPHAMIDE
     Route: 065
     Dates: start: 20170517, end: 20170618
  6. METHOTREXATE. [Suspect]
     Active Substance: METHOTREXATE
     Route: 065
     Dates: start: 20170425, end: 20170516
  7. LISINOPRIL. [Concomitant]
     Active Substance: LISINOPRIL
     Route: 065
  8. PURIXAN [Suspect]
     Active Substance: MERCAPTOPURINE
     Indication: ACUTE LYMPHOCYTIC LEUKAEMIA
     Route: 065
     Dates: start: 20170425, end: 20170516
  9. CYTARABINE. [Suspect]
     Active Substance: CYTARABINE
     Route: 065
     Dates: start: 20170425, end: 20170516
  10. CYTARABINE. [Suspect]
     Active Substance: CYTARABINE
     Route: 065
     Dates: start: 20170517, end: 20170618
  11. CYCLOPHOSPHAMIDE. [Suspect]
     Active Substance: CYCLOPHOSPHAMIDE
     Route: 065
     Dates: start: 20170425, end: 20170516
  12. MERCAPTOPURINE. [Suspect]
     Active Substance: MERCAPTOPURINE
     Route: 065
     Dates: start: 20170517, end: 20170619
  13. PEGASPARGASE [Suspect]
     Active Substance: PEGASPARGASE
     Route: 065
     Dates: start: 20170425, end: 20170516
  14. VINCRISTINE [Suspect]
     Active Substance: VINCRISTINE
     Route: 065
     Dates: start: 20170425, end: 20170516
  15. CARVEDILOL. [Concomitant]
     Active Substance: CARVEDILOL
     Route: 065
  16. PREDNISOLONE. [Suspect]
     Active Substance: PREDNISOLONE
     Route: 065
     Dates: start: 20170425, end: 20170516

REACTIONS (14)
  - Angioedema [Unknown]
  - Bradycardia [Unknown]
  - Gallbladder oedema [Recovered/Resolved]
  - Respiratory distress [Unknown]
  - Anaphylactic reaction [Unknown]
  - Pericardial effusion [Unknown]
  - Pancreatitis [Unknown]
  - Abdominal pain [Recovered/Resolved]
  - Ascites [Recovered/Resolved]
  - Febrile neutropenia [Unknown]
  - Gastrointestinal wall thickening [Recovered/Resolved]
  - Staphylococcal sepsis [Unknown]
  - Cytokine release syndrome [Unknown]
  - Hepatic steatosis [Recovered/Resolved]

NARRATIVE: CASE EVENT DATE: 20170606
